FAERS Safety Report 20589155 (Version 1)
Quarter: 2022Q1

REPORT INFORMATION
  Report Type: Spontaneous
  Country: US (occurrence: US)
  Receive Date: 20220314
  Receipt Date: 20220314
  Transmission Date: 20220423
  Serious: Yes (Hospitalization)
  Sender: FDA-Public Use
  Company Number: US-STRIDES ARCOLAB LIMITED-2022SP002495

PATIENT
  Age: 5 Week
  Sex: Female

DRUGS (4)
  1. PROPRANOLOL [Suspect]
     Active Substance: PROPRANOLOL HYDROCHLORIDE
     Indication: Infantile haemangioma
     Dosage: 0.5 MILLIGRAM/KILOGRAM, PER DAY (DIVIDED THREE TIMES DAILY)
     Route: 065
  2. PROPRANOLOL [Suspect]
     Active Substance: PROPRANOLOL HYDROCHLORIDE
     Indication: Ulcerated haemangioma
     Dosage: 1 MILLIGRAM/KILOGRAM, PER DAY (DIVIDED THREE TIMES DAILY)
     Route: 065
  3. PROPRANOLOL [Suspect]
     Active Substance: PROPRANOLOL HYDROCHLORIDE
     Dosage: 0.5 MILLIGRAM/KILOGRAM, PER DAY (DECREASED)
     Route: 065
  4. PROPRANOLOL [Suspect]
     Active Substance: PROPRANOLOL HYDROCHLORIDE
     Dosage: 2 MILLIGRAM/KILOGRAM, PER DAY (INCREASED)
     Route: 065

REACTIONS (6)
  - Ulcerated haemangioma [Recovered/Resolved]
  - Infantile haemangioma [Recovered/Resolved]
  - Condition aggravated [Recovered/Resolved]
  - Paradoxical drug reaction [Recovered/Resolved]
  - Ulcer haemorrhage [Recovered/Resolved]
  - Off label use [Unknown]
